FAERS Safety Report 8340303-1 (Version None)
Quarter: 2012Q2

REPORT INFORMATION
  Report Type: 
  Country: None (occurrence: None)
  Receive Date: 20120507
  Receipt Date: 20120507
  Transmission Date: 20120825
  Serious: No
  Sender: FDA-Public Use
  Company Number: None

PATIENT
  Age: 51 Year
  Sex: Male
  Weight: 88.45 kg

DRUGS (1)
  1. CIPROFLOXACIN HCL [Suspect]
     Dosage: |STRENGTH: 250 MG|

REACTIONS (6)
  - INSOMNIA [None]
  - PARAESTHESIA [None]
  - ANXIETY [None]
  - PAIN IN EXTREMITY [None]
  - ARTHRALGIA [None]
  - LIGAMENT PAIN [None]
